FAERS Safety Report 9552984 (Version 1)
Quarter: 2013Q3

REPORT INFORMATION
  Report Type: Spontaneous
  Country: AU (occurrence: AU)
  Receive Date: 20130925
  Receipt Date: 20130925
  Transmission Date: 20140515
  Serious: Yes (Other)
  Sender: FDA-Public Use
  Company Number: PHHY2013AU106581

PATIENT
  Age: 56 Year
  Sex: Female

DRUGS (1)
  1. LAMISIL [Suspect]
     Dosage: UNK UKN, UNK

REACTIONS (3)
  - Gastrooesophageal reflux disease [Unknown]
  - Lipase increased [Unknown]
  - Abdominal pain upper [Unknown]
